FAERS Safety Report 20461602 (Version 1)
Quarter: 2022Q1

REPORT INFORMATION
  Report Type: Spontaneous
  Country: IT (occurrence: IT)
  Receive Date: 20220211
  Receipt Date: 20220211
  Transmission Date: 20220424
  Serious: Yes (Hospitalization)
  Sender: FDA-Public Use
  Company Number: IT-MYLANLABS-2022M1011623

PATIENT
  Age: 50 Year
  Sex: Female

DRUGS (5)
  1. DIAZEPAM [Suspect]
     Active Substance: DIAZEPAM
     Indication: Withdrawal syndrome
     Dosage: ADMINISTERED UP TO 30MG
     Route: 042
  2. DIAZEPAM [Suspect]
     Active Substance: DIAZEPAM
     Indication: Anxiety
     Dosage: UNK, PRN; ADMINISTERED OCCASIONALLY (SOLUTION)
     Route: 048
  3. BACLOFEN [Suspect]
     Active Substance: BACLOFEN
     Indication: Withdrawal syndrome
     Dosage: UNK, QD; ADMINISTERED UP TO 20 MG
     Route: 065
  4. HALOPERIDOL [Suspect]
     Active Substance: HALOPERIDOL
     Indication: Withdrawal syndrome
     Dosage: ADMINISTERED UP TO 5 MG
     Route: 030
  5. PROMAZINE [Suspect]
     Active Substance: PROMAZINE
     Indication: Withdrawal syndrome
     Dosage: 80 MILLIGRAM
     Route: 030

REACTIONS (1)
  - Drug ineffective [Unknown]
